FAERS Safety Report 5248733-1 (Version None)
Quarter: 2007Q1

REPORT INFORMATION
  Report Type: 
  Country: None (occurrence: None)
  Receive Date: 20070223
  Receipt Date: 20070213
  Transmission Date: 20070707
  Serious: Yes (Hospitalization)
  Sender: FDA-Public Use
  Company Number: 152953ISR

PATIENT
  Age: 21 Year
  Sex: Female

DRUGS (2)
  1. DOXYCYCLINE [Suspect]
     Indication: ACNE
     Dosage: 100 MG, ORAL
     Route: 048
     Dates: start: 20060316, end: 20070107
  2. DOXYCYCLINE [Suspect]
     Indication: MALARIA PROPHYLAXIS
     Dosage: 100 MG, ORAL
     Route: 048
     Dates: start: 20060316, end: 20070107

REACTIONS (1)
  - BENIGN INTRACRANIAL HYPERTENSION [None]
